FAERS Safety Report 10861471 (Version 1)
Quarter: 2015Q1

REPORT INFORMATION
  Report Type: Spontaneous
  Country: DE (occurrence: DE)
  Receive Date: 20150224
  Receipt Date: 20150224
  Transmission Date: 20150721
  Serious: Yes (Death, Other)
  Sender: FDA-Public Use
  Company Number: DE-CIPLA LTD.-2015DE01301

PATIENT

DRUGS (3)
  1. CARBOPLATIN. [Suspect]
     Active Substance: CARBOPLATIN
     Indication: BONE MARROW TUMOUR CELL INFILTRATION
  2. VINCRISTINE [Suspect]
     Active Substance: VINCRISTINE
     Indication: BONE MARROW TUMOUR CELL INFILTRATION
  3. ETOPOSID [Suspect]
     Active Substance: ETOPOSIDE
     Indication: BONE MARROW TUMOUR CELL INFILTRATION

REACTIONS (2)
  - Drug ineffective [Unknown]
  - Disease progression [Fatal]
